FAERS Safety Report 5620472-4 (Version None)
Quarter: 2008Q1

REPORT INFORMATION
  Report Type: 
  Country: None (occurrence: None)
  Receive Date: 20080208
  Receipt Date: 20080201
  Transmission Date: 20080703
  Serious: Yes (Hospitalization)
  Sender: FDA-Public Use
  Company Number: US-BOEHRINGER INGELHEIM GMBH, GERMANY-2008-BP-01869BP

PATIENT

DRUGS (1)
  1. MICARDIS HCT [Suspect]

REACTIONS (1)
  - RENAL FAILURE [None]
